FAERS Safety Report 4569209-0 (Version None)
Quarter: 2005Q1

REPORT INFORMATION
  Report Type: 
  Country: None (occurrence: None)
  Receive Date: 20050201
  Receipt Date: 20050111
  Transmission Date: 20050727
  Serious: Yes (Other)
  Sender: FDA-Public Use
  Company Number: 0500001EN0010P

PATIENT
  Age: 12 Year
  Sex: Male

DRUGS (2)
  1. ADAGEN [Suspect]
     Dosage: 1.5 ML TWICE WEEKLY IM
     Route: 030
     Dates: start: 19930101, end: 19970101
  2. ADAGEN [Suspect]
     Dosage: 1.5 ML TWICE WEEKLY IM
     Route: 030
     Dates: start: 19970101

REACTIONS (6)
  - DRUG INEFFECTIVE [None]
  - DRUG LEVEL DECREASED [None]
  - INFECTION [None]
  - MEDICATION ERROR [None]
  - PNEUMONIA VIRAL [None]
  - WEIGHT DECREASED [None]
